FAERS Safety Report 6803389-9 (Version None)
Quarter: 2010Q2

REPORT INFORMATION
  Report Type: 
  Country: None (occurrence: None)
  Receive Date: 20100628
  Receipt Date: 20100622
  Transmission Date: 20101027
  Serious: Yes (Other)
  Sender: FDA-Public Use
  Company Number: US-BAYER-201017190BCC

PATIENT
  Sex: Male

DRUGS (2)
  1. BAYER ASPIRIN REGIMEN CAPLETS [Suspect]
     Indication: ISCHAEMIC HEART DISEASE PROPHYLAXIS
     Dosage: BOTTLE COUNT 100S
     Route: 048
     Dates: start: 20100601
  2. PLAVIX [Concomitant]
     Route: 065

REACTIONS (1)
  - HAEMATOCHEZIA [None]
